FAERS Safety Report 7384875-2 (Version None)
Quarter: 2011Q1

REPORT INFORMATION
  Report Type: 
  Country: None (occurrence: None)
  Receive Date: 20110330
  Receipt Date: 20110328
  Transmission Date: 20110831
  Serious: No
  Sender: FDA-Public Use
  Company Number: US-TEVA-273697USA

PATIENT
  Sex: Female
  Weight: 89.892 kg

DRUGS (14)
  1. TOPAMAX [Concomitant]
     Indication: PAIN
  2. SOMA [Concomitant]
     Indication: PAIN
  3. COMPAZINE [Concomitant]
     Indication: PAIN
  4. PLAN B ONE-STEP [Suspect]
     Indication: POST COITAL CONTRACEPTION
     Route: 048
     Dates: start: 20110315, end: 20110315
  5. ZANAFLEX [Concomitant]
     Indication: PAIN
  6. NEURONTIN [Concomitant]
     Indication: PAIN
  7. TRAZODONE [Concomitant]
     Indication: SLEEP DISORDER
  8. BUTALBITAL [Concomitant]
     Indication: PAIN
  9. EFFEXOR [Concomitant]
     Indication: PAIN
  10. WELLBUTRIN [Concomitant]
     Indication: DEPRESSION
  11. LUNESTA [Concomitant]
     Indication: SLEEP DISORDER
  12. PAMADOR [Concomitant]
     Indication: PAIN
  13. HYTRIN [Concomitant]
     Indication: PAIN
  14. CELEBREX [Concomitant]
     Indication: INFLAMMATION

REACTIONS (2)
  - MENSTRUATION DELAYED [None]
  - PREGNANCY TEST FALSE POSITIVE [None]
